FAERS Safety Report 8090696-8 (Version None)
Quarter: 2012Q1

REPORT INFORMATION
  Report Type: 
  Country: None (occurrence: None)
  Receive Date: 20120130
  Receipt Date: 20120119
  Transmission Date: 20120608
  Serious: Yes (Hospitalization, Other)
  Sender: FDA-Public Use
  Company Number: US-RB-025241-11

PATIENT
  Age: 37 Year
  Sex: Female

DRUGS (2)
  1. SUBOXONE [Suspect]
     Dosage: UNKNOWN DOSE - PATIENT IS CUTTING BACK ON HER OWN
     Route: 065
  2. SUBOXONE [Suspect]
     Indication: DRUG DEPENDENCE
     Route: 065
     Dates: start: 20090101

REACTIONS (7)
  - EATING DISORDER [None]
  - FIBROMYALGIA [None]
  - VOMITING [None]
  - PAIN [None]
  - UNDERDOSE [None]
  - MULTIPLE SCLEROSIS [None]
  - ARTHRALGIA [None]
